FAERS Safety Report 4488254-7 (Version None)
Quarter: 2004Q4

REPORT INFORMATION
  Report Type: 
  Country: None (occurrence: None)
  Receive Date: 20041028
  Receipt Date: 20040817
  Transmission Date: 20050328
  Serious: Yes (Other)
  Sender: FDA-Public Use
  Company Number: PHEH2004US08974

PATIENT
  Sex: Female

DRUGS (1)
  1. ZELNORM [Suspect]

REACTIONS (3)
  - BIOPSY SITE UNSPECIFIED ABNORMAL [None]
  - COLITIS ISCHAEMIC [None]
  - GASTROINTESTINAL DISORDER [None]
